FAERS Safety Report 6867019-2 (Version None)
Quarter: 2010Q3

REPORT INFORMATION
  Report Type: 
  Country: None (occurrence: None)
  Receive Date: 20100722
  Receipt Date: 20100719
  Transmission Date: 20110219
  Serious: Yes (Other)
  Sender: FDA-Public Use
  Company Number: FR-ROCHE-716203

PATIENT
  Sex: Male
  Weight: 33 kg

DRUGS (1)
  1. TAMIFLU [Suspect]
     Route: 048
     Dates: start: 20091221, end: 20091221

REACTIONS (3)
  - DELIRIUM [None]
  - HALLUCINATION [None]
  - VOMITING [None]
